FAERS Safety Report 11904627 (Version 1)
Quarter: 2016Q1

REPORT INFORMATION
  Report Type: Spontaneous
  Country: US (occurrence: US)
  Receive Date: 20160108
  Receipt Date: 20160108
  Transmission Date: 20160526
  Serious: No
  Sender: FDA-Public Use
  Company Number: US-ROCHE-1598409

PATIENT
  Sex: Male

DRUGS (3)
  1. RITUXAN [Suspect]
     Active Substance: RITUXIMAB
     Indication: HAIRY CELL LEUKAEMIA
     Route: 042
  2. CLADRIBINE. [Concomitant]
     Active Substance: CLADRIBINE
  3. PENTOSTATIN. [Concomitant]
     Active Substance: PENTOSTATIN
     Indication: HAIRY CELL LEUKAEMIA

REACTIONS (4)
  - Drug ineffective [Unknown]
  - Disease progression [Not Recovered/Not Resolved]
  - Hairy cell leukaemia [Not Recovered/Not Resolved]
  - Asthenia [Not Recovered/Not Resolved]
